FAERS Safety Report 4515561-1 (Version None)
Quarter: 2004Q4

REPORT INFORMATION
  Report Type: 
  Country: None (occurrence: None)
  Receive Date: 20041126
  Receipt Date: 20041111
  Transmission Date: 20050328
  Serious: Yes (Hospitalization)
  Sender: FDA-Public Use
  Company Number: 2004091580

PATIENT
  Age: 64 Year
  Sex: Female
  Weight: 63.5036 kg

DRUGS (9)
  1. DETROL LA [Suspect]
     Indication: MICTURITION URGENCY
     Dosage: SEE IMAGE
     Route: 048
     Dates: start: 19990101, end: 20041103
  2. DETROL LA [Suspect]
     Indication: MICTURITION URGENCY
     Dosage: SEE IMAGE
     Route: 048
     Dates: start: 20041104
  3. LIPITOR [Concomitant]
  4. ZOLOFT [Concomitant]
  5. PLAVIX [Concomitant]
  6. TOPROL-XL [Concomitant]
  7. FOLIC ACID [Concomitant]
  8. NORVASC [Concomitant]
  9. RITALIN [Concomitant]

REACTIONS (3)
  - CEREBROVASCULAR ACCIDENT [None]
  - DRUG INEFFECTIVE [None]
  - MICTURITION URGENCY [None]
